FAERS Safety Report 8479896-2 (Version None)
Quarter: 2012Q2

REPORT INFORMATION
  Report Type: 
  Country: None (occurrence: None)
  Receive Date: 20120629
  Receipt Date: 20120621
  Transmission Date: 20120825
  Serious: Yes (Other)
  Sender: FDA-Public Use
  Company Number: US-ABBOTT-12P-163-0948745-00

PATIENT
  Sex: Female
  Weight: 56.296 kg

DRUGS (28)
  1. AMITRIPTYLINE HCL [Concomitant]
     Indication: PAIN IN EXTREMITY
  2. DIGOXIN [Concomitant]
     Indication: BLOOD PRESSURE ABNORMAL
  3. RECLAST [Concomitant]
     Indication: OSTEOPOROSIS
     Dosage: INFUSION
  4. CEPHALEXIN [Concomitant]
     Indication: CYSTITIS
  5. NEXIUM [Concomitant]
     Indication: GASTROOESOPHAGEAL REFLUX DISEASE
  6. BIOTENE MOISTURIZER SPRAY [Concomitant]
     Indication: DRY MOUTH
  7. ZYRTEC [Concomitant]
     Indication: HYPERSENSITIVITY
  8. LISINOPRIL [Concomitant]
     Indication: HYPERTENSION
  9. AZATHIOPRINE [Suspect]
     Indication: PEMPHIGOID
  10. CLOBETASOL PROPIONATE [Concomitant]
     Indication: PEMPHIGOID
  11. CLONIDINE [Concomitant]
     Indication: HYPERTENSION
  12. DETROL LA [Concomitant]
     Indication: BLADDER IRRITATION
  13. DICYCLOMINE [Concomitant]
     Indication: GASTRIC DISORDER
  14. ZOLOFT [Concomitant]
     Indication: DEPRESSION
  15. TRIAMTERENE AND HYDROCHLOROTHIAZIDE [Concomitant]
     Indication: DIURETIC THERAPY
  16. HUMIRA [Suspect]
     Indication: CROHN'S DISEASE
  17. HYDROCORTISONE BUTYRATE [Concomitant]
     Indication: SKIN DISORDER
  18. ESTRACE [Concomitant]
     Indication: VULVOVAGINAL DRYNESS
  19. HEMORRHOIDAL HC [Concomitant]
     Indication: HAEMORRHOIDS
  20. NORVASC [Concomitant]
     Indication: HYPERTENSION
  21. CEPHALEXIN [Concomitant]
     Indication: PROPHYLAXIS
  22. VERAMYST [Concomitant]
     Indication: HYPERSENSITIVITY
  23. VITAMIN B-12 [Concomitant]
     Indication: CROHN'S DISEASE
  24. PREDNISONE TAB [Concomitant]
     Indication: PEMPHIGOID
  25. XANAX [Concomitant]
     Indication: ANXIOLYTIC THERAPY
  26. FERROUS IRON [Concomitant]
     Indication: ANAEMIA
  27. HYDROXYZINE HCL [Concomitant]
     Indication: PRURITUS
  28. HYDROXYZINE HCL [Concomitant]
     Indication: PEMPHIGOID

REACTIONS (6)
  - JOINT RANGE OF MOTION DECREASED [None]
  - ARTHROPATHY [None]
  - ROTATOR CUFF SYNDROME [None]
  - EXOSTOSIS [None]
  - MUSCULOSKELETAL PAIN [None]
  - DIARRHOEA [None]
